FAERS Safety Report 6926722-6 (Version None)
Quarter: 2010Q3

REPORT INFORMATION
  Report Type: 
  Country: None (occurrence: None)
  Receive Date: 20100816
  Receipt Date: 20100616
  Transmission Date: 20110219
  Serious: No
  Sender: FDA-Public Use
  Company Number: US-ABBOTT-10P-163-0652774-00

PATIENT
  Sex: Female
  Weight: 81.72 kg

DRUGS (3)
  1. SIMCOR [Suspect]
     Indication: BLOOD TRIGLYCERIDES INCREASED
     Dosage: 500/20MG
     Route: 048
     Dates: start: 20100501
  2. LISINOPRIL [Concomitant]
     Indication: HYPERTENSION
  3. SYNTHROID [Concomitant]
     Indication: THYROID DISORDER

REACTIONS (2)
  - ABDOMINAL DISTENSION [None]
  - CONSTIPATION [None]
